FAERS Safety Report 4841446-7 (Version None)
Quarter: 2005Q4

REPORT INFORMATION
  Report Type: 
  Country: None (occurrence: None)
  Receive Date: 20051130
  Receipt Date: 20050728
  Transmission Date: 20060501
  Serious: Yes (Other)
  Sender: FDA-Public Use
  Company Number: US-GLAXOSMITHKLINE-A0568110A

PATIENT
  Age: 25 Year
  Sex: Female
  Weight: 63.6 kg

DRUGS (2)
  1. WELLBUTRIN XL [Suspect]
     Indication: DEPRESSION
     Dosage: 300MG PER DAY
     Route: 048
     Dates: start: 20050701, end: 20050727
  2. NO CONCURRENT MEDICATIONS [Concomitant]

REACTIONS (3)
  - AMNESIA [None]
  - GRAND MAL CONVULSION [None]
  - TONGUE BITING [None]
